APPROVED DRUG PRODUCT: TOPIRAMATE
Active Ingredient: TOPIRAMATE
Strength: 50MG
Dosage Form/Route: CAPSULE, EXTENDED RELEASE;ORAL
Application: A215561 | Product #002 | TE Code: AB1
Applicant: LUPIN LTD
Approved: Jul 11, 2024 | RLD: No | RS: No | Type: RX